FAERS Safety Report 8902683 (Version 2)
Quarter: 2012Q4

REPORT INFORMATION
  Report Type: 
  Country: RU (occurrence: RU)
  Receive Date: 20121112
  Receipt Date: 20121130
  Transmission Date: 20130627
  Serious: Yes (Hospitalization)
  Sender: FDA-Public Use
  Company Number: RU-NOVOPROD-363491

PATIENT
  Age: 39 Year
  Sex: Male
  Weight: 68 kg

DRUGS (5)
  1. ACTRAPID HM PENFILL [Suspect]
     Indication: TYPE 1 DIABETES MELLITUS
     Dosage: (8-0-8)
     Route: 058
     Dates: start: 1995
  2. PROTAPHANE [Suspect]
     Indication: TYPE 1 DIABETES MELLITUS
     Dosage: (16-0-16)
     Route: 058
     Dates: start: 1995
  3. ACETYLSALICYLIC ACID [Concomitant]
  4. METAMIZOLE SODIUM [Concomitant]
  5. DIPHENHYDRAMINE [Concomitant]

REACTIONS (2)
  - Diabetic foot [Not Recovered/Not Resolved]
  - Condition aggravated [Not Recovered/Not Resolved]
